FAERS Safety Report 5234048-4 (Version None)
Quarter: 2007Q1

REPORT INFORMATION
  Report Type: 
  Country: None (occurrence: None)
  Receive Date: 20070208
  Receipt Date: 20070130
  Transmission Date: 20070707
  Serious: Yes (Hospitalization)
  Sender: FDA-Public Use
  Company Number: HU-ROXANE LABORATORIES, INC-2007-AP-00023AP

PATIENT
  Sex: Male
  Weight: 87 kg

DRUGS (7)
  1. DABIGATRAN (BLIND) [Suspect]
  2. WARFARIN (BLIND) [Suspect]
  3. PLACEBO (BLIND) [Suspect]
  4. DEPAKENE [Suspect]
     Indication: EPILEPSY
     Route: 048
     Dates: start: 20070112
  5. TEGRETOL [Suspect]
     Indication: EPILEPSY
     Route: 048
     Dates: start: 20070112
  6. SOTALOL HYDROCHLORIDE [Suspect]
     Indication: CARDIOPULMONARY FAILURE
     Route: 048
     Dates: start: 20070117
  7. FUROSEMIDE [Suspect]
     Indication: CARDIOPULMONARY FAILURE
     Route: 048
     Dates: start: 20070117

REACTIONS (2)
  - CARDIOPULMONARY FAILURE [None]
  - EPILEPSY [None]
